FAERS Safety Report 7968475-9 (Version None)
Quarter: 2011Q4

REPORT INFORMATION
  Report Type: 
  Country: None (occurrence: None)
  Receive Date: 20111209
  Receipt Date: 20111206
  Transmission Date: 20120403
  Serious: Yes (Hospitalization, Other)
  Sender: FDA-Public Use
  Company Number: JP-BAYER-201014998BYL

PATIENT
  Age: 66 Year
  Sex: Female

DRUGS (8)
  1. NEXAVAR [Suspect]
     Indication: HEPATIC NEOPLASM MALIGNANT
     Dosage: 400 MG, BID
     Route: 048
     Dates: start: 20100929
  2. AMARYL [Concomitant]
     Indication: DIABETES MELLITUS
     Dosage: DAILY DOSE 6 MG
     Route: 048
  3. URSO 250 [Concomitant]
     Indication: HEPATITIS C
     Dosage: DAILY DOSE 300 MG
     Route: 048
  4. GLYCYRON [AMINOACETIC ACID,DL-METHIONINE,GLYCYRRHIZIC ACID] [Concomitant]
     Indication: HEPATITIS C
     Dosage: DAILY DOSE 6 DF
     Route: 048
  5. BASEN [Concomitant]
     Indication: DIABETES MELLITUS
     Dosage: DAILY DOSE .6 MG
     Route: 048
  6. FAMOTIDINE [Concomitant]
     Indication: GASTRITIS
     Dosage: DAILY DOSE 10 MG
     Route: 048
  7. GASTROM [Concomitant]
     Indication: GASTRITIS
     Dosage: DAILY DOSE 2 DF
     Route: 048
  8. NORVASC [Concomitant]
     Indication: HYPERTENSION
     Dosage: DAILY DOSE 5 MG
     Route: 048

REACTIONS (3)
  - CEREBRAL THROMBOSIS [None]
  - RASH [None]
  - SKIN ULCER [None]
